FAERS Safety Report 4705344-1 (Version None)
Quarter: 2005Q2

REPORT INFORMATION
  Report Type: 
  Country: None (occurrence: None)
  Receive Date: 20050630
  Receipt Date: 20050630
  Transmission Date: 20051028
  Serious: Yes (Other)
  Sender: FDA-Public Use
  Company Number: None

PATIENT
  Age: 15 Year
  Sex: Male
  Weight: 68.0396 kg

DRUGS (2)
  1. LEXAPRO [Suspect]
     Dosage: 5 MG PO QD
     Route: 048
     Dates: start: 20040807, end: 20041027
  2. TRILEPTAL [Concomitant]

REACTIONS (1)
  - AGGRESSION [None]
